FAERS Safety Report 17564912 (Version 1)
Quarter: 2020Q1

REPORT INFORMATION
  Report Type: Spontaneous
  Country: FR (occurrence: FR)
  Receive Date: 20200320
  Receipt Date: 20200320
  Transmission Date: 20200409
  Serious: Yes (Hospitalization)
  Sender: FDA-Public Use
  Company Number: FR-ACCORD-176346

PATIENT
  Age: 51 Year
  Sex: Female

DRUGS (3)
  1. PERTUZUMAB. [Concomitant]
     Active Substance: PERTUZUMAB
     Route: 042
     Dates: start: 20191118
  2. TRASTUZUMAB. [Concomitant]
     Active Substance: TRASTUZUMAB
     Route: 042
     Dates: start: 20191118
  3. PACLITAXEL/PACLITAXEL LIPOSOME [Suspect]
     Active Substance: PACLITAXEL
     Indication: BREAST CANCER STAGE IV
     Route: 042
     Dates: start: 20191211, end: 20191211

REACTIONS (5)
  - Infusion related hypersensitivity reaction [Recovered/Resolved]
  - Hypertension [Recovered/Resolved]
  - Chest discomfort [Recovered/Resolved]
  - Erythema [Recovered/Resolved]
  - Laryngeal discomfort [Recovered/Resolved]

NARRATIVE: CASE EVENT DATE: 20191211
